FAERS Safety Report 7194149-0 (Version None)
Quarter: 2010Q4

REPORT INFORMATION
  Report Type: 
  Country: None (occurrence: None)
  Receive Date: 20101223
  Receipt Date: 20101011
  Transmission Date: 20110411
  Serious: No
  Sender: FDA-Public Use
  Company Number: US-AMGEN-TCS431625

PATIENT

DRUGS (6)
  1. ENBREL [Suspect]
     Indication: RHEUMATOID ARTHRITIS
     Dosage: 50 MG, QWK
     Route: 058
     Dates: start: 20100719, end: 20100913
  2. METFORMIN [Concomitant]
  3. TRAMADOL [Concomitant]
  4. VALSARTAN [Concomitant]
  5. ATORVASTATIN CALCIUM [Concomitant]
  6. GABAPENTIN [Concomitant]

REACTIONS (2)
  - DYSURIA [None]
  - HAEMATURIA [None]
